FAERS Safety Report 15917267 (Version 1)
Quarter: 2019Q1

REPORT INFORMATION
  Report Type: Spontaneous
  Country: CN (occurrence: CN)
  Receive Date: 20190205
  Receipt Date: 20190205
  Transmission Date: 20190417
  Serious: Yes (Hospitalization)
  Sender: FDA-Public Use
  Company Number: CN-SA-2019SA029204

PATIENT
  Age: 36 Year
  Sex: Female
  Weight: 35 kg

DRUGS (9)
  1. FLUOROURACIL 5 FU [Concomitant]
     Active Substance: FLUOROURACIL
     Indication: POSTOPERATIVE CARE
     Dosage: D1 + 5-FU 2.5 CIV 46H Q2W
     Route: 065
  2. LEUCOVORIN CALCIUM. [Concomitant]
     Active Substance: LEUCOVORIN CALCIUM
     Indication: CHEMOTHERAPY
  3. FLUOROURACIL 5 FU [Concomitant]
     Active Substance: FLUOROURACIL
     Indication: CHEMOTHERAPY
  4. LEUCOVORIN CALCIUM. [Concomitant]
     Active Substance: LEUCOVORIN CALCIUM
     Indication: COLON CANCER
     Dosage: 0.3 G,D1-2
     Route: 041
     Dates: start: 20180512
  5. ELOXATIN [Suspect]
     Active Substance: OXALIPLATIN
     Indication: CHEMOTHERAPY
     Dosage: 100 MG, QOD
     Route: 041
     Dates: start: 20180707, end: 20180707
  6. ELOXATIN [Suspect]
     Active Substance: OXALIPLATIN
     Indication: COLON CANCER
     Dosage: 100 MG, QOD
     Route: 041
     Dates: start: 20180829, end: 20180829
  7. ELOXATIN [Suspect]
     Active Substance: OXALIPLATIN
     Indication: POSTOPERATIVE CARE
     Dosage: 100 MG, QOW
     Route: 041
     Dates: start: 20180512, end: 20180512
  8. LEUCOVORIN CALCIUM. [Concomitant]
     Active Substance: LEUCOVORIN CALCIUM
     Indication: POSTOPERATIVE CARE
  9. FLUOROURACIL 5 FU [Concomitant]
     Active Substance: FLUOROURACIL
     Indication: COLON CANCER
     Dosage: 0.5 MG,D1-2+5
     Route: 041
     Dates: start: 20180512

REACTIONS (4)
  - Tachycardia [Recovered/Resolved]
  - Rash [Recovered/Resolved]
  - Hyperhidrosis [Recovered/Resolved]
  - Hypoaesthesia oral [Recovered/Resolved]

NARRATIVE: CASE EVENT DATE: 20180829
